FAERS Safety Report 5118783-4 (Version None)
Quarter: 2006Q4

REPORT INFORMATION
  Report Type: 
  Country: None (occurrence: None)
  Receive Date: 20061002
  Receipt Date: 20060922
  Transmission Date: 20070319
  Serious: Yes (Hospitalization)
  Sender: FDA-Public Use
  Company Number: DE-ROCHE-464067

PATIENT
  Age: 63 Year
  Sex: Male

DRUGS (2)
  1. ZENAPAX [Suspect]
     Route: 065
     Dates: start: 20060815
  2. TACROLIMUS [Suspect]
     Route: 048
     Dates: start: 20060815, end: 20060908

REACTIONS (1)
  - DYSARTHRIA [None]
